FAERS Safety Report 9442744 (Version 1)
Quarter: 2013Q3

REPORT INFORMATION
  Report Type: Spontaneous
  Country: US (occurrence: US)
  Receive Date: 20130806
  Receipt Date: 20130806
  Transmission Date: 20140515
  Serious: No
  Sender: FDA-Public Use
  Company Number: US-ABBOTT-13P-163-1048093-00

PATIENT
  Age: 20 Year
  Sex: Female
  Weight: 65.83 kg

DRUGS (4)
  1. DEPAKOTE ER [Suspect]
     Indication: PETIT MAL EPILEPSY
     Dosage: TWO 500 TABS AND ONE 250 MG TAB
     Dates: start: 20130205
  2. DEPAKOTE ER [Suspect]
     Dates: start: 20130131, end: 20130204
  3. DEPAKOTE ER [Suspect]
     Dosage: ONE 500 MG AND ONE 250 MG
     Dates: start: 2008, end: 20130203
  4. LEXAPRO [Concomitant]
     Indication: DEPRESSION

REACTIONS (5)
  - Aura [Not Recovered/Not Resolved]
  - Laboratory test [Unknown]
  - Petit mal epilepsy [Not Recovered/Not Resolved]
  - Insomnia [Not Recovered/Not Resolved]
  - Poor quality sleep [Not Recovered/Not Resolved]
